FAERS Safety Report 15330088 (Version 2)
Quarter: 2018Q4

REPORT INFORMATION
  Report Type: Report from Study
  Country: FR (occurrence: FR)
  Receive Date: 20180829
  Receipt Date: 20181012
  Transmission Date: 20190204
  Serious: Yes (Other)
  Sender: FDA-Public Use
  Company Number: PHHY2018FR083616

PATIENT
  Age: 41 Year
  Sex: Female

DRUGS (1)
  1. CTL019 [Suspect]
     Active Substance: TISAGENLECLEUCEL
     Indication: DIFFUSE LARGE B-CELL LYMPHOMA
     Dosage: UNK
     Route: 065
     Dates: start: 20180702

REACTIONS (8)
  - Cytokine release syndrome [Unknown]
  - Nervous system disorder [Not Recovered/Not Resolved]
  - Blood pressure increased [Unknown]
  - Pyrexia [Unknown]
  - Gait disturbance [Unknown]
  - Cytopenia [Not Recovered/Not Resolved]
  - Cerebellar syndrome [Unknown]
  - Balance disorder [Unknown]

NARRATIVE: CASE EVENT DATE: 20180814
